FAERS Safety Report 19606451 (Version 1)
Quarter: 2021Q3

REPORT INFORMATION
  Report Type: Spontaneous
  Country: US (occurrence: US)
  Receive Date: 20210725
  Receipt Date: 20210725
  Transmission Date: 20211014
  Serious: Yes (Hospitalization)
  Sender: FDA-Public Use
  Company Number: NVSC2021US166161

PATIENT
  Age: 66 Year
  Sex: Male

DRUGS (2)
  1. RANITIDINE. [Suspect]
     Active Substance: RANITIDINE
     Indication: STENT PLACEMENT
     Dosage: 150 MG, QD
     Route: 048
     Dates: start: 201301, end: 201911
  2. RANITIDINE. [Suspect]
     Active Substance: RANITIDINE
     Indication: STENT PLACEMENT
     Dosage: 150 MG, QD
     Route: 048
     Dates: start: 201301, end: 201911

REACTIONS (2)
  - Product use in unapproved indication [Unknown]
  - Colorectal cancer [Recovering/Resolving]

NARRATIVE: CASE EVENT DATE: 20190927
